FAERS Safety Report 18126957 (Version 1)
Quarter: 2020Q3

REPORT INFORMATION
  Report Type: Spontaneous
  Country: CN (occurrence: CN)
  Receive Date: 20200810
  Receipt Date: 20200810
  Transmission Date: 20201103
  Serious: Yes (Hospitalization, Other)
  Sender: FDA-Public Use
  Company Number: CN-BAXTER-2020BAX015943

PATIENT
  Age: 17 Year
  Sex: Male
  Weight: 60 kg

DRUGS (8)
  1. 0.9% SODIUM CHLORIDE INJECTION [Suspect]
     Active Substance: SODIUM CHLORIDE
     Indication: MEDICATION DILUTION
     Dosage: DAY 1, XIAKE 4 MG + NS 500 ML
     Route: 041
     Dates: start: 20200709, end: 20200709
  2. 5% GLUCOSE  INJECTION [Suspect]
     Active Substance: DEXTROSE
     Dosage: DAY 1?2, DOXORUBICIN HYDROCHLORIDE LIPOSOME 20 MG + GS 500 ML
     Route: 041
     Dates: start: 20200709, end: 20200710
  3. ETOPOSIDE. [Suspect]
     Active Substance: ETOPOSIDE
     Indication: EWING^S SARCOMA
     Route: 065
  4. ENDOXAN [Suspect]
     Active Substance: CYCLOPHOSPHAMIDE
     Indication: EWING^S SARCOMA
     Dosage: DAY 1?2, ENDOXAN 0.85 G + GS 500 ML
     Route: 041
     Dates: start: 20200709, end: 20200710
  5. HOLOXAN [Suspect]
     Active Substance: IFOSFAMIDE
     Indication: EWING^S SARCOMA
     Route: 065
  6. 5% GLUCOSE  INJECTION [Suspect]
     Active Substance: DEXTROSE
     Indication: MEDICATION DILUTION
     Dosage: DAY 1?2, ENDOXAN 0.85 G + GS 500 ML
     Route: 041
     Dates: start: 20200709, end: 20200710
  7. XIAIKE [Suspect]
     Active Substance: VINDESINE
     Indication: EWING^S SARCOMA
     Dosage: DAY 1, XIAKE 4 MG + NS 500 ML
     Route: 041
     Dates: start: 20200709, end: 20200709
  8. DOXORUBICIN HYDROCHLORIDE LIPOSOMAL [Suspect]
     Active Substance: DOXORUBICIN HYDROCHLORIDE
     Indication: EWING^S SARCOMA
     Dosage: DAY 1?2, DOXORUBICIN HYDROCHLORIDE LIPOSOME 20 MG + GS 500 ML
     Route: 041
     Dates: start: 20200709, end: 20200710

REACTIONS (2)
  - Myelosuppression [Recovered/Resolved]
  - Myelosuppression [Recovering/Resolving]

NARRATIVE: CASE EVENT DATE: 20200721
